FAERS Safety Report 8934101 (Version 1)
Quarter: 2012Q4

REPORT INFORMATION
  Report Type: 
  Country: US (occurrence: US)
  Receive Date: 20121129
  Receipt Date: 20121129
  Transmission Date: 20130627
  Serious: Yes (Other)
  Sender: FDA-Public Use
  Company Number: US-ROCHE-1161232

PATIENT
  Age: 40 Year
  Sex: Male

DRUGS (2)
  1. MYCOPHENOLATE MOFETIL [Suspect]
     Indication: INFLAMMATORY PSEUDOTUMOUR
     Route: 065
  2. PREDNISONE [Concomitant]
     Indication: INFLAMMATORY PSEUDOTUMOUR
     Dosage: 20 mg Prednisone in the morning and 10 mg at lunch
     Route: 065

REACTIONS (1)
  - Rectal haemorrhage [Unknown]
